FAERS Safety Report 17888028 (Version 1)
Quarter: 2020Q2

REPORT INFORMATION
  Report Type: Spontaneous
  Country: US (occurrence: US)
  Receive Date: 20200612
  Receipt Date: 20200612
  Transmission Date: 20200714
  Serious: No
  Sender: FDA-Public Use
  Company Number: US-ASTRAZENECA-2020SE75285

PATIENT
  Age: 79 Year
  Sex: Female
  Weight: 55.3 kg

DRUGS (3)
  1. NEXIUM 24HR [Suspect]
     Active Substance: ESOMEPRAZOLE MAGNESIUM
     Indication: DYSPEPSIA
     Dosage: 1 DF [(42 CAPSULES); 1 CAPSULE BY MOUTH FOR 14 DAYS]
     Route: 048
     Dates: start: 20200511, end: 202005
  2. PREDNISONE. [Suspect]
     Active Substance: PREDNISONE
     Dosage: 80 MG, DAILY
     Route: 065
     Dates: start: 20200513
  3. FAMOTIDINE. [Suspect]
     Active Substance: FAMOTIDINE
     Indication: DYSPEPSIA
     Dosage: 40 MG, 2X/DAY (40MG, 1 BY MOUTH BEFORE BREAKFAST AND 1 BEFORE BEDTIME)
     Route: 065
     Dates: start: 202005

REACTIONS (2)
  - Gastritis [Unknown]
  - Drug ineffective [Not Recovered/Not Resolved]

NARRATIVE: CASE EVENT DATE: 202005
